FAERS Safety Report 5291308-9 (Version None)
Quarter: 2007Q2

REPORT INFORMATION
  Report Type: 
  Country: None (occurrence: None)
  Receive Date: 20070409
  Receipt Date: 20070328
  Transmission Date: 20071010
  Serious: Yes (Disabling, Other)
  Sender: FDA-Public Use
  Company Number: FR-PFIZER INC-2007026375

PATIENT
  Age: 50 Year
  Sex: Female

DRUGS (2)
  1. CHAMPIX [Suspect]
     Indication: EX-SMOKER
  2. VALSARTAN [Concomitant]

REACTIONS (4)
  - CHEST PAIN [None]
  - DYSPNOEA [None]
  - FATIGUE [None]
  - WHEEZING [None]
